FAERS Safety Report 15887516 (Version 1)
Quarter: 2019Q1

REPORT INFORMATION
  Report Type: Spontaneous
  Country: FR (occurrence: FR)
  Receive Date: 20190130
  Receipt Date: 20190130
  Transmission Date: 20190417
  Serious: Yes (Other)
  Sender: FDA-Public Use
  Company Number: FR-ACCORD-104146

PATIENT
  Age: 15 Year
  Sex: Female
  Weight: 40 kg

DRUGS (2)
  1. TERCIAN [Interacting]
     Active Substance: CYAMEMAZINE
     Indication: ANOREXIA NERVOSA
     Dosage: STRENGTH:40 MG / M
     Route: 048
     Dates: start: 20180125
  2. SERTRALINE [Suspect]
     Active Substance: SERTRALINE HYDROCHLORIDE
     Indication: ANOREXIA NERVOSA
     Route: 048
     Dates: start: 20180217, end: 201803

REACTIONS (3)
  - Normochromic normocytic anaemia [Recovered/Resolved]
  - Drug interaction [Unknown]
  - Epistaxis [Recovered/Resolved]

NARRATIVE: CASE EVENT DATE: 20180207
